FAERS Safety Report 11131352 (Version 1)
Quarter: 2015Q2

REPORT INFORMATION
  Report Type: Spontaneous
  Country: US (occurrence: US)
  Receive Date: 20150522
  Receipt Date: 20150522
  Transmission Date: 20150821
  Serious: Yes (Other)
  Sender: FDA-Public Use
  Company Number: US-TEVA-563947USA

PATIENT

DRUGS (2)
  1. VINCRISTINE [Suspect]
     Active Substance: VINCRISTINE
     Indication: BRAIN NEOPLASM
     Dosage: 1.5 MG/M2 ON DAYS 1 AND 8
     Route: 042
  2. CARBOPLATIN. [Suspect]
     Active Substance: CARBOPLATIN
     Indication: BRAIN NEOPLASM
     Dosage: 560 MG/M2 OVER 1-3 HOURS ON DAY 1
     Route: 065

REACTIONS (2)
  - Hypomagnesaemia [Unknown]
  - Hypocalcaemia [Unknown]
